FAERS Safety Report 6647580 (Version 12)
Quarter: 2012Q4

REPORT INFORMATION
  Report Type: 
  Country: US (occurrence: US)
  Receive Date: 20080523
  Receipt Date: 20121011
  Transmission Date: 20130627
  Serious: Yes (Other)
  Sender: FDA-Public Use
  Company Number: US-ROCHE-521385

PATIENT
  Age: 22 None
  Sex: Male
  Weight: 81.6 kg

DRUGS (4)
  1. ACCUTANE [Suspect]
     Indication: ACNE
     Route: 048
     Dates: start: 19840112, end: 19840603
  2. PREDNISONE [Suspect]
     Indication: CROHN^S DISEASE
     Route: 065
  3. PURINETHOL [Suspect]
     Indication: CROHN^S DISEASE
     Route: 065
  4. BONIVA [Concomitant]
     Indication: OSTEOPOROSIS
     Route: 065

REACTIONS (6)
  - Inflammatory bowel disease [Not Recovered/Not Resolved]
  - Crohn^s disease [Unknown]
  - Colitis ulcerative [Not Recovered/Not Resolved]
  - Adenocarcinoma [Not Recovered/Not Resolved]
  - Osteoporosis [Unknown]
  - Anaemia macrocytic [Unknown]
